FAERS Safety Report 6503770-1 (Version None)
Quarter: 2009Q4

REPORT INFORMATION
  Report Type: 
  Country: None (occurrence: None)
  Receive Date: 20091217
  Receipt Date: 20091209
  Transmission Date: 20100525
  Serious: Yes (Other)
  Sender: FDA-Public Use
  Company Number: JP-ALLERGAN-0916624US

PATIENT
  Age: 23 Year
  Sex: Female
  Weight: 47 kg

DRUGS (2)
  1. EPINASTINE HYDROCHLORIDE [Suspect]
     Indication: PRURIGO
     Dosage: 20 MG, QD
     Route: 048
     Dates: start: 20091120, end: 20091124
  2. STROMECTOL [Suspect]
     Indication: ACARODERMATITIS
     Dosage: 9 MG, QD
     Route: 048
     Dates: start: 20091121, end: 20091124

REACTIONS (1)
  - PLATELET COUNT DECREASED [None]
